FAERS Safety Report 20460046 (Version 1)
Quarter: 2022Q1

REPORT INFORMATION
  Report Type: Spontaneous
  Country: FR (occurrence: FR)
  Receive Date: 20220211
  Receipt Date: 20220211
  Transmission Date: 20220423
  Serious: Yes (Hospitalization)
  Sender: FDA-Public Use
  Company Number: FR-VALIDUS PHARMACEUTICALS LLC-FR-VDP-2022-015051

PATIENT

DRUGS (10)
  1. FUROSEMIDE [Suspect]
     Active Substance: FUROSEMIDE
     Indication: Cardiac failure
     Dosage: 500 MILLIGRAM, QD (STOP DATE- OCT-2021)
     Route: 048
  2. LANSOPRAZOLE [Suspect]
     Active Substance: LANSOPRAZOLE
     Indication: Prophylaxis against gastrointestinal ulcer
     Dosage: 30 MILLIGRAM, QD (STOP DATE- 08-NOV-2021)
     Route: 048
  3. LIOTHYRONINE SODIUM [Suspect]
     Active Substance: LIOTHYRONINE SODIUM
     Indication: Basedow^s disease
     Dosage: UNK, QD
     Route: 048
     Dates: start: 201904, end: 20211002
  4. CARBIMAZOLE [Suspect]
     Active Substance: CARBIMAZOLE
     Indication: Basedow^s disease
     Dosage: 40 MILLIGRAM, QD
     Route: 048
     Dates: start: 201904, end: 20211002
  5. XARELTO [Suspect]
     Active Substance: RIVAROXABAN
     Indication: Thrombosis prophylaxis
     Dosage: 15 MILLIGRAM
     Route: 048
     Dates: start: 202107, end: 202110
  6. SPIRONOLACTONE [Suspect]
     Active Substance: SPIRONOLACTONE
     Indication: Cardiac failure
     Dosage: 12.5 MILLIGRAM, QD (STOP DATE- OCT-2021)
     Route: 048
  7. CLOPIDOGREL BISULFATE [Suspect]
     Active Substance: CLOPIDOGREL BISULFATE
     Indication: Myocardial ischaemia
     Dosage: UNK, QD
     Route: 048
  8. AMIODARONE HYDROCHLORIDE [Suspect]
     Active Substance: AMIODARONE HYDROCHLORIDE
     Indication: Atrial fibrillation
     Dosage: UNK
     Route: 048
  9. BISOPROLOL [Suspect]
     Active Substance: BISOPROLOL
     Indication: Cardiac failure
     Dosage: 2.5 MILLIGRAM, QD
     Route: 048
  10. ENTRESTO [Suspect]
     Active Substance: SACUBITRIL\VALSARTAN
     Indication: Cardiac failure
     Dosage: 98/102 MILLIGRAM, QD
     Route: 048
     Dates: start: 202107, end: 202110

REACTIONS (1)
  - Diffuse vasculitis [Not Recovered/Not Resolved]

NARRATIVE: CASE EVENT DATE: 20211109
